FAERS Safety Report 6279587-2 (Version None)
Quarter: 2009Q3

REPORT INFORMATION
  Report Type: 
  Country: None (occurrence: None)
  Receive Date: 20090723
  Receipt Date: 20090721
  Transmission Date: 20100115
  Serious: Yes (Death)
  Sender: FDA-Public Use
  Company Number: A0797633A

PATIENT
  Age: 83 Year
  Sex: Female

DRUGS (2)
  1. PROMACTA [Suspect]
     Indication: THROMBOCYTOPENIA
     Dosage: 75MG PER DAY
     Route: 048
     Dates: start: 20090327, end: 20090605
  2. FLUOXYMESTERONE [Concomitant]

REACTIONS (2)
  - DRUG INEFFECTIVE [None]
  - MYELOFIBROSIS [None]
